FAERS Safety Report 6368144-5 (Version None)
Quarter: 2009Q3

REPORT INFORMATION
  Report Type: 
  Country: None (occurrence: None)
  Receive Date: 20090922
  Receipt Date: 20090912
  Transmission Date: 20100115
  Serious: Yes (Other)
  Sender: FDA-Public Use
  Company Number: US-AMGEN-QUU364463

PATIENT
  Sex: Female

DRUGS (1)
  1. ENBREL [Suspect]
     Indication: PSORIATIC ARTHROPATHY
     Route: 058
     Dates: start: 20030801

REACTIONS (2)
  - EYE PAIN [None]
  - SPINAL FUSION SURGERY [None]
